FAERS Safety Report 14306911 (Version 2)
Quarter: 2018Q2

REPORT INFORMATION
  Report Type: Spontaneous
  Country: US (occurrence: US)
  Receive Date: 20171220
  Receipt Date: 20180530
  Transmission Date: 20180711
  Serious: Yes (Other)
  Sender: FDA-Public Use
  Company Number: US-AUROBINDO-AUR-APU-2017-41038

PATIENT
  Sex: Male

DRUGS (2)
  1. AMOXICILLIN CAPSULES USP 500 MG [Suspect]
     Active Substance: AMOXICILLIN
     Indication: PRODUCT USED FOR UNKNOWN INDICATION
     Dosage: UNK
     Route: 065
     Dates: start: 20170808, end: 2017
  2. AMOXICILLIN CAPSULES USP 500 MG [Suspect]
     Active Substance: AMOXICILLIN
     Dosage: UNK
     Route: 065
     Dates: start: 20170916

REACTIONS (15)
  - Balance disorder [Unknown]
  - Tunnel vision [Not Recovered/Not Resolved]
  - Mydriasis [Unknown]
  - Feeling cold [Unknown]
  - Heart rate increased [Not Recovered/Not Resolved]
  - Disturbance in attention [Not Recovered/Not Resolved]
  - Asthenia [Unknown]
  - Flushing [Not Recovered/Not Resolved]
  - Dizziness [Recovered/Resolved]
  - Hyperhidrosis [Recovered/Resolved]
  - Fatigue [Unknown]
  - Syncope [Unknown]
  - Abdominal discomfort [Not Recovered/Not Resolved]
  - Pruritus [Unknown]
  - Sleep disorder [Not Recovered/Not Resolved]

NARRATIVE: CASE EVENT DATE: 2017
